FAERS Safety Report 8347136-0 (Version None)
Quarter: 2012Q2

REPORT INFORMATION
  Report Type: 
  Country: None (occurrence: None)
  Receive Date: 20120509
  Receipt Date: 20120427
  Transmission Date: 20120825
  Serious: No
  Sender: FDA-Public Use
  Company Number: US-ROXANE LABORATORIES, INC.-2012-RO-01160RO

PATIENT
  Sex: Female

DRUGS (2)
  1. CODEINE SUL TAB [Suspect]
  2. MORPHINE [Suspect]

REACTIONS (1)
  - DRUG HYPERSENSITIVITY [None]
